FAERS Safety Report 7450254-2 (Version None)
Quarter: 2011Q2

REPORT INFORMATION
  Report Type: 
  Country: None (occurrence: None)
  Receive Date: 20110502
  Receipt Date: 20110429
  Transmission Date: 20111010
  Serious: Yes (Death)
  Sender: FDA-Public Use
  Company Number: CO-B.I. PHARMACEUTICALS,INC./RIDGEFIELD-2011-RA-00137RA

PATIENT
  Age: 58 Year
  Sex: Male

DRUGS (1)
  1. TELMISARTAN/AMLODIPINE [Suspect]

REACTIONS (1)
  - INFARCTION [None]
